FAERS Safety Report 16391721 (Version 1)
Quarter: 2019Q2

REPORT INFORMATION
  Report Type: Spontaneous
  Country: US (occurrence: US)
  Receive Date: 20190605
  Receipt Date: 20190605
  Transmission Date: 20190711
  Serious: No
  Sender: FDA-Public Use
  Company Number: US-ROCHE-2221991

PATIENT
  Age: 47 Year
  Sex: Female

DRUGS (3)
  1. OCREVUS [Suspect]
     Active Substance: OCRELIZUMAB
     Route: 042
     Dates: end: 20180228
  2. OCREVUS [Suspect]
     Active Substance: OCRELIZUMAB
     Indication: RELAPSING-REMITTING MULTIPLE SCLEROSIS
     Dosage: 1ST SPLIT DOSE
     Route: 042
     Dates: start: 20180214
  3. OCREVUS [Suspect]
     Active Substance: OCRELIZUMAB
     Dosage: 1ST FULL DOSE
     Route: 042
     Dates: end: 20180914

REACTIONS (4)
  - Abdominal distension [Unknown]
  - Breast discomfort [Recovering/Resolving]
  - Weight increased [Unknown]
  - Increased appetite [Not Recovered/Not Resolved]

NARRATIVE: CASE EVENT DATE: 20180915
